FAERS Safety Report 18490766 (Version 1)
Quarter: 2020Q4

REPORT INFORMATION
  Report Type: Spontaneous
  Country: US (occurrence: US)
  Receive Date: 20201111
  Receipt Date: 20201111
  Transmission Date: 20210114
  Serious: No
  Sender: FDA-Public Use
  Company Number: US-STRIDES ARCOLAB LIMITED-2020SP009255

PATIENT
  Age: 40 Year
  Sex: Female

DRUGS (10)
  1. NALTREXONE [Concomitant]
     Active Substance: NALTREXONE
     Indication: NEURODERMATITIS
     Dosage: UNK
     Route: 065
  2. DOXEPIN [Concomitant]
     Active Substance: DOXEPIN
     Indication: NEURODERMATITIS
     Dosage: UNK
     Route: 065
  3. THALIDOMIDE [Concomitant]
     Active Substance: THALIDOMIDE
     Indication: NEURODERMATITIS
     Dosage: UNK
     Route: 065
  4. TOFACITINIB [Concomitant]
     Active Substance: TOFACITINIB
     Indication: NEURODERMATITIS
     Dosage: UNK
     Route: 065
  5. TRIAMCINOLONE [Concomitant]
     Active Substance: TRIAMCINOLONE
     Indication: NEURODERMATITIS
     Dosage: UNK
     Route: 026
  6. CYCLOSPORINE. [Suspect]
     Active Substance: CYCLOSPORINE
     Indication: NEURODERMATITIS
     Dosage: UNK
     Route: 065
  7. GABAPENTIN. [Suspect]
     Active Substance: GABAPENTIN
     Indication: NEURODERMATITIS
     Dosage: UNK
     Route: 065
  8. METHOTREXATE. [Concomitant]
     Active Substance: METHOTREXATE
     Indication: NEURODERMATITIS
     Dosage: UNK
     Route: 065
  9. APREMILAST [Concomitant]
     Active Substance: APREMILAST
     Indication: NEURODERMATITIS
     Dosage: UNK
     Route: 065
  10. PREDNISONE. [Concomitant]
     Active Substance: PREDNISONE
     Indication: NEURODERMATITIS
     Dosage: UNK
     Route: 065

REACTIONS (1)
  - Off label use [Unknown]
